FAERS Safety Report 25442489 (Version 2)
Quarter: 2025Q2

REPORT INFORMATION
  Report Type: Report from Study
  Country: US (occurrence: US)
  Receive Date: 20250617
  Receipt Date: 20250623
  Transmission Date: 20250717
  Serious: Yes (Other)
  Sender: UCB
  Company Number: US-UCBSA-2025035051

PATIENT
  Age: 22 Year
  Sex: Female
  Weight: 86 kg

DRUGS (1)
  1. FINTEPLA [Suspect]
     Active Substance: FENFLURAMINE
     Indication: Seizure
     Dosage: 5.9 MILLILITER, 2X/DAY (BID)
     Dates: start: 202412

REACTIONS (2)
  - Aortic valve thickening [Not Recovered/Not Resolved]
  - Mitral valve thickening [Not Recovered/Not Resolved]

NARRATIVE: CASE EVENT DATE: 20250604
